FAERS Safety Report 8120305 (Version 3)
Quarter: 2013Q2

REPORT INFORMATION
  Report Type: Report from Study
  Country: DE (occurrence: DE)
  Receive Date: 20110906
  Receipt Date: 20130412
  Transmission Date: 20140414
  Serious: Yes (Hospitalization, Other)
  Sender: FDA-Public Use
  Company Number: DE-AMGEN-DEUCT2011044605

PATIENT
  Age: 71 Year
  Sex: Female
  Weight: 70 kg

DRUGS (6)
  1. ETANERCEPT [Suspect]
     Indication: PSORIASIS
     Dosage: 50 MG, QWK
     Route: 058
     Dates: start: 20110302, end: 20110706
  2. ETANERCEPT [Suspect]
     Indication: PSORIATIC ARTHROPATHY
  3. BLOPRESS [Concomitant]
     Indication: ESSENTIAL HYPERTENSION
     Dosage: 1 DF, 1X/DAY
  4. CORTISONE [Concomitant]
     Indication: PSORIATIC ARTHROPATHY
     Dosage: UNK, 1 X/DAY
  5. ALFASON [Concomitant]
     Indication: PSORIATIC ARTHROPATHY
     Dosage: UNK UNK, QD
     Dates: start: 201103
  6. ALFASON [Concomitant]
     Dosage: UNK, 2X/DAY
     Dates: start: 201107

REACTIONS (2)
  - Swelling face [Not Recovered/Not Resolved]
  - Cyanosis [Not Recovered/Not Resolved]
